FAERS Safety Report 6888629-2 (Version None)
Quarter: 2010Q3

REPORT INFORMATION
  Report Type: 
  Country: None (occurrence: None)
  Receive Date: 20100730
  Receipt Date: 20071011
  Transmission Date: 20110219
  Serious: No
  Sender: FDA-Public Use
  Company Number: US-PFIZER INC-2007086123

PATIENT
  Sex: Female

DRUGS (7)
  1. LIPITOR [Suspect]
     Indication: BLOOD CHOLESTEROL
  2. NEURONTIN [Concomitant]
  3. PROZAC [Concomitant]
     Indication: ANXIETY
     Dates: start: 19900101
  4. KLONOPIN [Concomitant]
     Indication: ANXIETY
  5. BENICAR [Concomitant]
     Indication: HYPERTENSION
  6. IBUPROFEN TABLETS [Concomitant]
  7. PRILOSEC [Concomitant]

REACTIONS (5)
  - ARTHRITIS [None]
  - CARPAL TUNNEL SYNDROME [None]
  - MIGRAINE [None]
  - MUSCLE SPASMS [None]
  - MYALGIA [None]
